FAERS Safety Report 15814421 (Version 2)
Quarter: 2019Q1

REPORT INFORMATION
  Report Type: Spontaneous
  Country: GB (occurrence: GB)
  Receive Date: 20190111
  Receipt Date: 20190204
  Transmission Date: 20190417
  Serious: Yes (Death, Other)
  Sender: FDA-Public Use
  Company Number: GB-PFIZER INC-HQWYE177313MAY03

PATIENT
  Age: 26 Year
  Sex: Female

DRUGS (8)
  1. RAPAMUNE [Interacting]
     Active Substance: SIROLIMUS
     Dosage: 2.0 MG, DAILY
  2. MYCOPHENOLATE MOFETIL. [Concomitant]
     Active Substance: MYCOPHENOLATE MOFETIL
     Dosage: 1.5 G, DAILY
  3. RAPAMUNE [Interacting]
     Active Substance: SIROLIMUS
     Dosage: 8 MG, DAILY
  4. MYCOPHENOLATE MOFETIL. [Concomitant]
     Active Substance: MYCOPHENOLATE MOFETIL
     Dosage: UNK
     Route: 065
  5. AZATHIOPRINE. [Concomitant]
     Active Substance: AZATHIOPRINE
     Dosage: UNK
     Route: 065
  6. NEORAL [Interacting]
     Active Substance: CYCLOSPORINE
     Indication: IMMUNOSUPPRESSANT DRUG THERAPY
     Dosage: 200 MG, TWICE DAILY
     Route: 065
  7. RAPAMUNE [Suspect]
     Active Substance: SIROLIMUS
     Indication: IMMUNOSUPPRESSANT DRUG THERAPY
     Dosage: 6.0 MG, DAILY
     Route: 048
  8. RAPAMUNE [Interacting]
     Active Substance: SIROLIMUS
     Dosage: DOSAGE WAS INCREASED (UNSPECIFIED)

REACTIONS (5)
  - Kidney transplant rejection [Unknown]
  - Lung infiltration [Unknown]
  - Haemolytic uraemic syndrome [Fatal]
  - Cytomegalovirus infection [Unknown]
  - Potentiating drug interaction [Fatal]
